FAERS Safety Report 23126871 (Version 1)
Quarter: 2023Q4

REPORT INFORMATION
  Report Type: Spontaneous
  Country: PA (occurrence: PA)
  Receive Date: 20231030
  Receipt Date: 20231030
  Transmission Date: 20240110
  Serious: Yes (Other)
  Sender: FDA-Public Use
  Company Number: PA-SANDOZ-SDZ2023PA046463

PATIENT
  Sex: Female

DRUGS (3)
  1. ANASTROZOLE [Suspect]
     Active Substance: ANASTROZOLE
     Indication: Product used for unknown indication
     Dosage: 1 MG, TID
     Route: 065
  2. ANASTROZOLE [Suspect]
     Active Substance: ANASTROZOLE
     Dosage: 2 DF
     Route: 065
     Dates: start: 202012
  3. KISQALI [Suspect]
     Active Substance: RIBOCICLIB
     Indication: Breast cancer metastatic
     Dosage: 400 MG, QD
     Route: 048
     Dates: start: 201911

REACTIONS (4)
  - Metastases to bone [Recovering/Resolving]
  - Burning sensation [Recovering/Resolving]
  - Vitiligo [Recovering/Resolving]
  - Back pain [Not Recovered/Not Resolved]
